FAERS Safety Report 9443127 (Version 2)
Quarter: 2013Q3

REPORT INFORMATION
  Report Type: Spontaneous
  Country: US (occurrence: US)
  Receive Date: 20130806
  Receipt Date: 20130916
  Transmission Date: 20140515
  Serious: Yes (Death)
  Sender: FDA-Public Use
  Company Number: US-INCYTE CORPORATION-2013IN001705

PATIENT
  Age: 88 Year
  Sex: Female
  Weight: 54.88 kg

DRUGS (2)
  1. JAKAFI [Suspect]
     Indication: MYELOFIBROSIS
     Dosage: 10 MG, QD
     Route: 048
     Dates: start: 20130424, end: 20130724
  2. ASA [Concomitant]
     Dosage: 81 MG, UNK

REACTIONS (2)
  - Cerebral haemorrhage [Fatal]
  - Myocardial infarction [Fatal]
